FAERS Safety Report 9440562 (Version 1)
Quarter: 2013Q3

REPORT INFORMATION
  Report Type: Spontaneous
  Country: US (occurrence: US)
  Receive Date: 20130805
  Receipt Date: 20130805
  Transmission Date: 20140515
  Serious: Yes (Other)
  Sender: FDA-Public Use
  Company Number: US-PFIZER INC-2013226140

PATIENT
  Age: 83 Year
  Sex: Female
  Weight: 72.56 kg

DRUGS (2)
  1. CADUET [Suspect]
     Indication: HYPERTENSION
     Dosage: UNK,DAILY
  2. DIOVAN HCT [Concomitant]
     Indication: HYPERTENSION
     Dosage: [HYDROCHLOROTHIAZIDE 12.5MG]/ [VALSARTAN 160 MG] ONCE DAILY

REACTIONS (3)
  - Vascular occlusion [Unknown]
  - Chromaturia [Recovered/Resolved]
  - Faeces discoloured [Recovered/Resolved]
